FAERS Safety Report 24524391 (Version 1)
Quarter: 2024Q4

REPORT INFORMATION
  Report Type: Spontaneous
  Country: CN (occurrence: CN)
  Receive Date: 20241018
  Receipt Date: 20241018
  Transmission Date: 20250115
  Serious: Yes (Hospitalization)
  Sender: ABBVIE
  Company Number: CN-ABBVIE-5962979

PATIENT
  Age: 43 Year
  Sex: Female

DRUGS (4)
  1. BOTULINUM TOXIN TYPE A [Suspect]
     Active Substance: BOTULINUM TOXIN TYPE A
     Indication: Skin cosmetic procedure
     Dosage: TIME INTERVAL: AS NECESSARY: 50 UNIT?EVERY 1 DAYS
     Route: 058
     Dates: start: 20240926, end: 20240926
  2. BOTULINUM TOXIN TYPE A [Suspect]
     Active Substance: BOTULINUM TOXIN TYPE A
     Indication: Skin cosmetic procedure
     Dosage: TIME INTERVAL: AS NECESSARY: 20 UNIT?EVERY 1 DAYS
     Route: 058
     Dates: start: 20240926, end: 20240926
  3. BOTULINUM TOXIN TYPE A [Suspect]
     Active Substance: BOTULINUM TOXIN TYPE A
     Indication: Skin cosmetic procedure
     Dosage: TIME INTERVAL: AS NECESSARY: 20 UNIT?EVERY 1 DAYS
     Route: 058
     Dates: start: 20240926, end: 20240926
  4. BOTULINUM TOXIN TYPE A [Suspect]
     Active Substance: BOTULINUM TOXIN TYPE A
     Indication: Skin cosmetic procedure
     Dosage: TIME INTERVAL: AS NECESSARY: 20 UNIT?EVERY 1 DAYS
     Route: 058
     Dates: start: 20240926, end: 20240926

REACTIONS (7)
  - Face oedema [Recovering/Resolving]
  - Injection site pruritus [Recovering/Resolving]
  - Injection site haemorrhage [Recovering/Resolving]
  - Eyelid oedema [Unknown]
  - Drug hypersensitivity [Unknown]
  - Erythema [Unknown]
  - Eye oedema [Unknown]

NARRATIVE: CASE EVENT DATE: 20240101
